FAERS Safety Report 4987500-0 (Version None)
Quarter: 2006Q2

REPORT INFORMATION
  Report Type: 
  Country: None (occurrence: None)
  Receive Date: 20060501
  Receipt Date: 20051104
  Transmission Date: 20061013
  Serious: Yes (Hospitalization)
  Sender: FDA-Public Use
  Company Number: US-MERCK-0511USA00761

PATIENT
  Age: 64 Year
  Sex: Male

DRUGS (9)
  1. PLAVIX [Concomitant]
     Route: 065
  2. SOLU-CORTEF [Concomitant]
     Route: 065
  3. NICODERM [Concomitant]
     Route: 065
  4. ZEPHREX [Concomitant]
     Route: 065
  5. VIOXX [Suspect]
     Route: 048
     Dates: start: 20010518, end: 20041001
  6. SKELAXIN [Concomitant]
     Route: 065
  7. GLYNASE [Concomitant]
     Route: 065
  8. CALAN [Concomitant]
     Route: 065
  9. ELAVIL [Concomitant]
     Route: 065

REACTIONS (11)
  - BACK PAIN [None]
  - CEREBROVASCULAR ACCIDENT [None]
  - CERVICAL MYELOPATHY [None]
  - DIABETES MELLITUS [None]
  - HYPERTENSION [None]
  - LIVER FUNCTION TEST ABNORMAL [None]
  - NEUROGENIC BLADDER [None]
  - PARKINSONISM [None]
  - POLYARTHRITIS [None]
  - POLYNEUROPATHY [None]
  - URINARY TRACT INFECTION [None]
